FAERS Safety Report 5122548-7 (Version None)
Quarter: 2006Q4

REPORT INFORMATION
  Report Type: 
  Country: None (occurrence: None)
  Receive Date: 20061005
  Receipt Date: 20061005
  Transmission Date: 20070319
  Serious: Yes (Hospitalization)
  Sender: FDA-Public Use
  Company Number: None

PATIENT
  Age: 48 Year
  Sex: Female
  Weight: 146.0582 kg

DRUGS (5)
  1. ESTROSTEP FE [Suspect]
     Indication: MENORRHAGIA
     Dosage: 1 PILL A DAY
     Dates: start: 20060601, end: 20060724
  2. ESTROGEN WITH FE [Concomitant]
  3. ASCORBIC ACID [Concomitant]
  4. CALCIUM GLUCONATE [Concomitant]
  5. ASPIRIN [Concomitant]

REACTIONS (7)
  - DECREASED ACTIVITY [None]
  - DYSPNOEA [None]
  - FATIGUE [None]
  - IMPAIRED WORK ABILITY [None]
  - LUNG DISORDER [None]
  - PULMONARY EMBOLISM [None]
  - THROMBOSIS [None]
